FAERS Safety Report 6068477-6 (Version None)
Quarter: 2009Q1

REPORT INFORMATION
  Report Type: 
  Country: None (occurrence: None)
  Receive Date: 20090206
  Receipt Date: 20090127
  Transmission Date: 20090719
  Serious: Yes (Other)
  Sender: FDA-Public Use
  Company Number: JP-PFIZER INC-2009163377

PATIENT

DRUGS (1)
  1. MYCOBUTIN [Suspect]

REACTIONS (1)
  - RHABDOMYOLYSIS [None]
